FAERS Safety Report 7054487 (Version 10)
Quarter: 2013Q4

REPORT INFORMATION
  Report Type: Spontaneous
  Country: US (occurrence: US)
  Receive Date: 20090720
  Receipt Date: 20131004
  Transmission Date: 20140711
  Serious: Yes (Hospitalization)
  Sender: FDA-Public Use
  Company Number: US-BIOGENIDEC-2009BI021066

PATIENT
  Age: 54 Year
  Sex: Female
  Weight: 86 kg

DRUGS (3)
  1. AVONEX [Suspect]
     Indication: MULTIPLE SCLEROSIS
     Route: 030
     Dates: start: 20030916, end: 20080628
  2. AVONEX [Suspect]
     Indication: MULTIPLE SCLEROSIS
     Route: 030
     Dates: start: 20080801, end: 201305
  3. AVONEX [Suspect]
     Indication: MULTIPLE SCLEROSIS
     Route: 030
     Dates: start: 20130720

REACTIONS (18)
  - Pancreatitis [Recovered/Resolved]
  - Sphincter of Oddi dysfunction [Not Recovered/Not Resolved]
  - Gallbladder disorder [Recovered/Resolved]
  - Meniscus injury [Recovered/Resolved]
  - Breast discomfort [Recovered/Resolved]
  - Bile duct stenosis [Recovered/Resolved]
  - Abdominal pain upper [Recovered/Resolved]
  - Constipation [Recovered/Resolved]
  - Chest discomfort [Recovered/Resolved]
  - Underdose [Unknown]
  - Hepatic pain [Unknown]
  - Blood glucose increased [Not Recovered/Not Resolved]
  - Speech disorder [Unknown]
  - Epicondylitis [Not Recovered/Not Resolved]
  - Carpal tunnel syndrome [Not Recovered/Not Resolved]
  - Migraine [Recovered/Resolved]
  - Nausea [Unknown]
  - Paraesthesia [Not Recovered/Not Resolved]
